FAERS Safety Report 8086449-7 (Version None)
Quarter: 2012Q1

REPORT INFORMATION
  Report Type: 
  Country: None (occurrence: None)
  Receive Date: 20120128
  Receipt Date: 20110504
  Transmission Date: 20120608
  Serious: Yes (Other)
  Sender: FDA-Public Use
  Company Number: US-ABBOTT-11P-163-0723946-00

PATIENT
  Sex: Female

DRUGS (5)
  1. LISINOPRIL [Concomitant]
     Indication: HYPERTENSION
  2. METOPROLOL TARTRATE AND HYDROCHLOROTHIAZIDE [Concomitant]
     Indication: PRODUCT USED FOR UNKNOWN INDICATION
  3. TERIPARATIDE [Concomitant]
     Indication: OSTEOPOROSIS
  4. LORAZEPAM [Concomitant]
     Indication: ANXIETY
  5. HUMIRA [Suspect]
     Indication: ARTHRITIS
     Dates: start: 20101101

REACTIONS (2)
  - PAIN IN EXTREMITY [None]
  - CHEST PAIN [None]
